FAERS Safety Report 5176665-6 (Version None)
Quarter: 2006Q4

REPORT INFORMATION
  Report Type: 
  Country: None (occurrence: None)
  Receive Date: 20061216
  Receipt Date: 20061207
  Transmission Date: 20070319
  Serious: Yes (Hospitalization)
  Sender: FDA-Public Use
  Company Number: FR-ABBOTT-06P-056-0352740-00

PATIENT
  Age: 48 Year
  Sex: Male

DRUGS (7)
  1. NORVIR [Suspect]
     Indication: HIV INFECTION
     Route: 048
     Dates: start: 20051227
  2. SEROPLEX FILM-COATED TABLETS [Suspect]
     Indication: ANXIETY
     Route: 048
  3. SEROPLEX FILM-COATED TABLETS [Suspect]
     Indication: DEPRESSION
  4. FOSAMPRENAVIR [Suspect]
     Indication: HIV INFECTION
     Route: 048
     Dates: start: 20051227
  5. ABACAVIR [Suspect]
     Indication: HIV INFECTION
     Route: 048
     Dates: start: 20051227
  6. CYAMEMAZINE [Suspect]
     Indication: ANXIETY
     Route: 048
  7. CYAMEMAZINE [Suspect]
     Indication: DEPRESSION

REACTIONS (16)
  - ATRIAL SEPTAL DEFECT [None]
  - BRAIN STEM SYNDROME [None]
  - CARDIAC ANEURYSM [None]
  - CEREBROVASCULAR DISORDER [None]
  - COORDINATION ABNORMAL [None]
  - CSF LACTATE INCREASED [None]
  - FACIAL PALSY [None]
  - GAIT DISTURBANCE [None]
  - HYPERTRIGLYCERIDAEMIA [None]
  - HYPOTENSION [None]
  - LOSS OF CONSCIOUSNESS [None]
  - MALAISE [None]
  - MASS [None]
  - NEUROGENIC BLADDER [None]
  - PYRAMIDAL TRACT SYNDROME [None]
  - SENSORY LOSS [None]
